FAERS Safety Report 10023735 (Version 1)
Quarter: 2014Q1

REPORT INFORMATION
  Report Type: Spontaneous
  Country: US (occurrence: US)
  Receive Date: 20140320
  Receipt Date: 20140320
  Transmission Date: 20141002
  Serious: Yes (Other)
  Sender: FDA-Public Use
  Company Number: GXBR2014US000886

PATIENT
  Age: 79 Year
  Sex: Male
  Weight: 77.98 kg

DRUGS (3)
  1. CHOLESTYRAMINE FOR ORAL SUSPENSION USP [Suspect]
     Indication: DIARRHOEA
     Dosage: UNK DF, UNK
     Dates: start: 201312, end: 201403
  2. CHOLESTYRAMINE FOR ORAL SUSPENSION USP [Suspect]
     Indication: OFF LABEL USE
  3. ALLOPURINOL [Concomitant]
     Indication: GOUT
     Dosage: UNK MG, UNK

REACTIONS (2)
  - Hypotension [Not Recovered/Not Resolved]
  - Dizziness [Not Recovered/Not Resolved]
